FAERS Safety Report 6464228-1 (Version None)
Quarter: 2009Q4

REPORT INFORMATION
  Report Type: 
  Country: None (occurrence: None)
  Receive Date: 20091201
  Receipt Date: 20091123
  Transmission Date: 20100525
  Serious: Yes (Other)
  Sender: FDA-Public Use
  Company Number: BR-ELI_LILLY_AND_COMPANY-BR200911005917

PATIENT
  Age: 58 Year
  Sex: Female

DRUGS (1)
  1. GEMCITABINE HCL [Suspect]
     Dosage: UNK, UNKNOWN
     Route: 065

REACTIONS (1)
  - SEBORRHOEIC KERATOSIS [None]
